FAERS Safety Report 12693740 (Version 3)
Quarter: 2016Q4

REPORT INFORMATION
  Report Type: Spontaneous
  Country: US (occurrence: US)
  Receive Date: 20160829
  Receipt Date: 20161013
  Transmission Date: 20170207
  Serious: No
  Sender: FDA-Public Use
  Company Number: US-PFIZER INC-2016390355

PATIENT
  Sex: Female

DRUGS (2)
  1. VINCRISTINE SULFATE. [Suspect]
     Active Substance: VINCRISTINE SULFATE
     Dosage: UNK
  2. DAUNOMYCIN [Suspect]
     Active Substance: DAUNORUBICIN
     Dosage: UNK

REACTIONS (1)
  - Transaminases increased [Unknown]
